FAERS Safety Report 7012347-3 (Version None)
Quarter: 2010Q3

REPORT INFORMATION
  Report Type: 
  Country: None (occurrence: None)
  Receive Date: 20100924
  Receipt Date: 20100913
  Transmission Date: 20110219
  Serious: Yes (Hospitalization, Other)
  Sender: FDA-Public Use
  Company Number: PHHY2010FR61606

PATIENT
  Sex: Male

DRUGS (6)
  1. EXELON [Suspect]
     Indication: PARKINSON'S DISEASE
     Dosage: 6 MG, 2 CAPSULE DAILY
     Route: 048
     Dates: start: 20060707, end: 20100601
  2. MODOPAR [Suspect]
     Indication: PARKINSON'S DISEASE
     Dosage: 100/25 MG 5 DF DAILY
     Route: 049
     Dates: start: 20060707, end: 20100601
  3. MODOPAR [Suspect]
     Dosage: 50/12.5 MG 2 DF DAILY
     Route: 048
     Dates: start: 20060707, end: 20100701
  4. GUTRON [Suspect]
     Indication: ORTHOSTATIC HYPOTENSION
     Dosage: 2 DF, BID
     Dates: start: 20100521, end: 20100601
  5. LEXOMIL [Concomitant]
     Dosage: UNK
     Dates: end: 20100601
  6. MOTILIUM [Concomitant]
     Dosage: UNK
     Dates: start: 20091201

REACTIONS (7)
  - ASPERGILLUS TEST POSITIVE [None]
  - DYSPNOEA [None]
  - HAEMOGLOBIN DECREASED [None]
  - LEUKOPENIA [None]
  - ORTHOSTATIC HYPOTENSION [None]
  - PULMONARY CONGESTION [None]
  - PYREXIA [None]
